FAERS Safety Report 24030152 (Version 2)
Quarter: 2024Q3

REPORT INFORMATION
  Report Type: Spontaneous
  Country: ES (occurrence: ES)
  Receive Date: 20240628
  Receipt Date: 20240708
  Transmission Date: 20241017
  Serious: Yes (Hospitalization)
  Sender: MYLAN
  Company Number: ES-STADA-01251735

PATIENT
  Age: 68 Year
  Sex: Female

DRUGS (12)
  1. PIPERACILLIN SODIUM\TAZOBACTAM SODIUM [Suspect]
     Active Substance: PIPERACILLIN SODIUM\TAZOBACTAM SODIUM
     Indication: Mucosal inflammation
     Dosage: UNK
     Route: 065
     Dates: start: 2023, end: 20230508
  2. ACYCLOVIR [Suspect]
     Active Substance: ACYCLOVIR
     Indication: Mucosal inflammation
     Dosage: UNK
     Route: 065
     Dates: start: 2023
  3. VORICONAZOLE [Suspect]
     Active Substance: VORICONAZOLE
     Indication: Mucosal inflammation
     Dosage: UNK
     Route: 065
     Dates: start: 2023, end: 20230508
  4. DAPTOMYCIN [Suspect]
     Active Substance: DAPTOMYCIN
     Indication: Mucosal inflammation
     Dosage: UNK
     Route: 065
  5. PEMBROLIZUMAB [Suspect]
     Active Substance: PEMBROLIZUMAB
     Indication: Lung squamous cell carcinoma metastatic
     Dosage: 2 MILLIGRAM/KILOGRAM, Q3W (EVERY 3 WEEKS)
     Route: 065
     Dates: start: 20230418
  6. HUMAN IMMUNOGLOBULIN G [Suspect]
     Active Substance: HUMAN IMMUNOGLOBULIN G
     Indication: Neutropenia
     Dosage: 1 GRAM PER KILOGRAM, QD (1 G/KG/DAY)
     Route: 042
     Dates: start: 20230509
  7. MEROPENEM [Suspect]
     Active Substance: MEROPENEM
     Indication: Neutropenia
     Dosage: UNK
     Route: 065
     Dates: start: 20230508
  8. METHYLPREDNISOLONE [Suspect]
     Active Substance: METHYLPREDNISOLONE
     Indication: Neutropenia
     Dosage: 40 MILLIGRAM, QD
     Route: 042
     Dates: start: 20230505
  9. LEVOFLOXACIN [Concomitant]
     Active Substance: LEVOFLOXACIN
     Indication: Stenotrophomonas infection
     Dosage: 500 MG/100 ML EVERY 24 HR
     Route: 065
     Dates: start: 20230512
  10. NYSTATIN [Concomitant]
     Active Substance: NYSTATIN
     Indication: Candida infection
     Dosage: UNK
     Route: 065
     Dates: start: 2023
  11. CASPOFUNGIN [Concomitant]
     Active Substance: CASPOFUNGIN
     Indication: Candida infection
     Dosage: UNK
     Route: 065
     Dates: start: 20230508
  12. ERYTHROPOIETIN [Concomitant]
     Active Substance: ERYTHROPOIETIN
     Indication: Anaemia
     Dosage: UNK
     Route: 065

REACTIONS (3)
  - Febrile neutropenia [Unknown]
  - Anaemia [Unknown]
  - Drug ineffective [Unknown]

NARRATIVE: CASE EVENT DATE: 20230101
